FAERS Safety Report 24443397 (Version 2)
Quarter: 2024Q4

REPORT INFORMATION
  Report Type: Spontaneous
  Country: MX (occurrence: MX)
  Receive Date: 20241016
  Receipt Date: 20241024
  Transmission Date: 20250114
  Serious: Yes (Death, Life-Threatening, Other)
  Sender: ACCORD
  Company Number: MX-Accord-451640

PATIENT
  Age: 59 Year
  Sex: Male

DRUGS (2)
  1. METHOTREXATE [Suspect]
     Active Substance: METHOTREXATE
     Indication: Plasma cell myeloma refractory
     Dosage: TWICE A WEEK (COMPLETE 19 WEEKLY DOSES)
     Route: 037
     Dates: start: 202106
  2. HYDROCORTISONE [Suspect]
     Active Substance: HYDROCORTISONE
     Indication: Plasma cell myeloma refractory
     Dosage: TWICE A WEEK (COMPLETE 19 WEEKLY DOSES)
     Route: 037
     Dates: start: 202106

REACTIONS (3)
  - Pulmonary embolism [Fatal]
  - Deep vein thrombosis [Recovering/Resolving]
  - Off label use [Unknown]

NARRATIVE: CASE EVENT DATE: 20210701
